FAERS Safety Report 7297325-1 (Version None)
Quarter: 2011Q1

REPORT INFORMATION
  Report Type: 
  Country: None (occurrence: None)
  Receive Date: 20110207
  Receipt Date: 20110125
  Transmission Date: 20110831
  Serious: Yes (Hospitalization)
  Sender: FDA-Public Use
  Company Number: B067700A

PATIENT

DRUGS (1)
  1. DIGOXIN (DIGOXIN) (FORMULATION UNKNOWN) (GENERIC) [Suspect]
     Dosage: ORAL
     Route: 048

REACTIONS (2)
  - SUICIDE ATTEMPT [None]
  - TOXICITY TO VARIOUS AGENTS [None]
